FAERS Safety Report 24924720 (Version 1)
Quarter: 2025Q1

REPORT INFORMATION
  Report Type: Report from Study
  Country: US (occurrence: US)
  Receive Date: 20250204
  Receipt Date: 20250204
  Transmission Date: 20250409
  Serious: No
  Sender: EXELIXIS
  Company Number: US-EXELIXIS-CABO-24075540

PATIENT
  Sex: Male

DRUGS (15)
  1. CABOMETYX [Suspect]
     Active Substance: CABOZANTINIB S-MALATE
     Indication: Renal cell carcinoma
     Dosage: 40 MG, QD
     Dates: start: 2023
  2. OPDIVO [Suspect]
     Active Substance: NIVOLUMAB
     Indication: Renal cell carcinoma
     Dosage: UNK, Q2WEEKS
     Dates: start: 2023
  3. NIFEDIPINE [Concomitant]
     Active Substance: NIFEDIPINE
  4. GABAPENTIN [Concomitant]
     Active Substance: GABAPENTIN
  5. ELIQUIS [Concomitant]
     Active Substance: APIXABAN
  6. FUROSEMIDE [Concomitant]
     Active Substance: FUROSEMIDE
  7. THIAMINE HYDROCHLORIDE [Concomitant]
     Active Substance: THIAMINE HYDROCHLORIDE
  8. FOLIC ACID [Concomitant]
     Active Substance: FOLIC ACID
  9. ALLOPURINOL [Concomitant]
     Active Substance: ALLOPURINOL
  10. COLCHICINE [Concomitant]
     Active Substance: COLCHICINE
  11. FINASTERIDE [Concomitant]
     Active Substance: FINASTERIDE
  12. TAMSULOSIN [Concomitant]
     Active Substance: TAMSULOSIN
  13. POTASSIUM PHOSPHATE [Concomitant]
     Active Substance: POTASSIUM PHOSPHATE
  14. LISINOPRIL [Concomitant]
     Active Substance: LISINOPRIL
  15. FLUCONAZOLE [Concomitant]
     Active Substance: FLUCONAZOLE

REACTIONS (12)
  - Hyperkeratosis [Recovering/Resolving]
  - Taste disorder [Not Recovered/Not Resolved]
  - Blood calcium decreased [Recovering/Resolving]
  - Blood potassium decreased [Recovering/Resolving]
  - Diarrhoea [Recovered/Resolved]
  - Rash [Recovered/Resolved]
  - Mastication disorder [Unknown]
  - Skin lesion [Recovering/Resolving]
  - Limb injury [Unknown]
  - Rhinorrhoea [Recovering/Resolving]
  - Skin irritation [Recovered/Resolved]
  - Impaired healing [Not Recovered/Not Resolved]
